FAERS Safety Report 8773911 (Version 1)
Quarter: 2012Q4

REPORT INFORMATION
  Report Type: 
  Country: DE (occurrence: IT)
  Receive Date: 20120907
  Receipt Date: 20120907
  Transmission Date: 20130627
  Serious: Yes (Other)
  Sender: FDA-Public Use
  Company Number: IT-BRISTOL-MYERS SQUIBB COMPANY-16921108

PATIENT

DRUGS (5)
  1. ERBITUX SOLN FOR INF [Suspect]
     Indication: COLON CANCER
     Dosage: 13Mar-17Jul12: 400mg(125D), Unknwn-Ongoin:250mg
     Route: 042
     Dates: start: 20120313
  2. OXALIPLATIN [Concomitant]
     Indication: COLON CANCER
     Route: 042
     Dates: start: 20120313, end: 20120717
  3. FLUOROURACIL [Concomitant]
     Indication: COLON CANCER
     Dosage: 2400mg/m2 46hr continuous infusion
     Route: 042
     Dates: start: 20120313, end: 20120717
  4. LEVOFOLENE [Concomitant]
     Indication: COLON CANCER
     Route: 042
     Dates: start: 20120313, end: 20120717
  5. ZANTAC [Concomitant]
     Route: 042
     Dates: start: 20120313, end: 20120717

REACTIONS (3)
  - Hyperbilirubinaemia [Recovered/Resolved]
  - Folliculitis [Recovered/Resolved]
  - Nail disorder [Recovered/Resolved]
